FAERS Safety Report 5968234-2 (Version None)
Quarter: 2008Q4

REPORT INFORMATION
  Report Type: 
  Country: None (occurrence: None)
  Receive Date: 20081126
  Receipt Date: 20081124
  Transmission Date: 20090506
  Serious: Yes (Other)
  Sender: FDA-Public Use
  Company Number: B0547793A

PATIENT
  Age: 45 Year
  Sex: Female

DRUGS (8)
  1. ARTIST [Suspect]
     Indication: CARDIAC FAILURE
     Dosage: 1.25MG TWICE PER DAY
     Route: 048
     Dates: start: 20080513, end: 20080611
  2. MERCAZOLE [Suspect]
     Indication: HYPERTHYROIDISM
     Dosage: 2TAB THREE TIMES PER DAY
     Route: 048
     Dates: start: 20080515, end: 20080523
  3. PROPYL-THIOURACIL [Suspect]
     Indication: HYPERTHYROIDISM
     Route: 048
     Dates: start: 20080524, end: 20080527
  4. TEPRENONE [Concomitant]
  5. MAGLAX [Concomitant]
  6. POTASSIUM IODIDE [Concomitant]
  7. CEFMETAZON [Concomitant]
  8. NEUTROGIN [Concomitant]

REACTIONS (4)
  - GRANULOCYTE COUNT DECREASED [None]
  - INFECTION [None]
  - NEUTROPHIL COUNT DECREASED [None]
  - PYREXIA [None]
